FAERS Safety Report 6298682-5 (Version None)
Quarter: 2009Q3

REPORT INFORMATION
  Report Type: 
  Country: None (occurrence: None)
  Receive Date: 20090804
  Receipt Date: 20090720
  Transmission Date: 20100115
  Serious: Yes (Hospitalization)
  Sender: FDA-Public Use
  Company Number: 238089K09USA

PATIENT
  Age: 58 Year
  Sex: Female
  Weight: 62 kg

DRUGS (4)
  1. REBIF [Suspect]
     Indication: MULTIPLE SCLEROSIS
     Dosage: 44 MCG, 3 IN 1 WEEKS, SUBCUTANEOUS
     Route: 058
     Dates: start: 20030630
  2. DIOVAN [Concomitant]
  3. NAPROXEN (NAPROEN /00256201/) [Concomitant]
  4. XANAX [Concomitant]

REACTIONS (3)
  - FALL [None]
  - HIP FRACTURE [None]
  - OSTEOPOROSIS [None]
